FAERS Safety Report 17898444 (Version 1)
Quarter: 2020Q2

REPORT INFORMATION
  Report Type: Spontaneous
  Country: IL (occurrence: IL)
  Receive Date: 20200616
  Receipt Date: 20200616
  Transmission Date: 20200714
  Serious: Yes (Other)
  Sender: FDA-Public Use
  Company Number: IL-ROCHE-2616233

PATIENT
  Sex: Male

DRUGS (2)
  1. ZELBORAF [Suspect]
     Active Substance: VEMURAFENIB
     Indication: BRAIN NEOPLASM
     Route: 065
  2. COTELLIC [Suspect]
     Active Substance: COBIMETINIB
     Indication: BRAIN NEOPLASM
     Dosage: 40-60 MG
     Route: 065

REACTIONS (5)
  - Paronychia [Unknown]
  - Aplastic anaemia [Unknown]
  - Haemorrhoidal haemorrhage [Recovered/Resolved]
  - Anaemia [Recovering/Resolving]
  - Blood alkaline phosphatase increased [Unknown]
